FAERS Safety Report 7878860-1 (Version None)
Quarter: 2011Q4

REPORT INFORMATION
  Report Type: 
  Country: None (occurrence: None)
  Receive Date: 20111021
  Receipt Date: 20110518
  Transmission Date: 20120403
  Serious: Yes (Other)
  Sender: FDA-Public Use
  Company Number: 2011SP022913

PATIENT

DRUGS (3)
  1. TEMODAR [Suspect]
     Indication: GLIOBLASTOMA MULTIFORME
     Dosage: 75 MG/M2;QD;PO
     Route: 048
     Dates: start: 20101101, end: 20110201
  2. TEMODAR [Suspect]
     Indication: GLIOBLASTOMA MULTIFORME
     Dosage: 75 MG/M2;QD;PO
     Route: 048
     Dates: start: 20110204
  3. PREDNISONE [Concomitant]

REACTIONS (1)
  - RASH GENERALISED [None]
